FAERS Safety Report 19579599 (Version 3)
Quarter: 2021Q3

REPORT INFORMATION
  Report Type: Spontaneous
  Country: US (occurrence: US)
  Receive Date: 20210720
  Receipt Date: 20210802
  Transmission Date: 20211014
  Serious: Yes (Hospitalization, Other)
  Sender: FDA-Public Use
  Company Number: US-GLAXOSMITHKLINE-US2021151870

PATIENT
  Sex: Female

DRUGS (1)
  1. ZEJULA [Suspect]
     Active Substance: NIRAPARIB
     Indication: OVARIAN CANCER
     Dosage: 200 MG, QD
     Route: 048
     Dates: start: 20210701, end: 20210719

REACTIONS (12)
  - Epistaxis [Unknown]
  - Dyspnoea [Not Recovered/Not Resolved]
  - Blood creatinine decreased [Unknown]
  - Dizziness [Unknown]
  - Arthralgia [Unknown]
  - Gait inability [Unknown]
  - Tremor [Unknown]
  - Decreased appetite [Unknown]
  - Nausea [Unknown]
  - Condition aggravated [Unknown]
  - Thrombosis [Unknown]
  - Back pain [Unknown]
